FAERS Safety Report 6809772-X (Version None)
Quarter: 2010Q2

REPORT INFORMATION
  Report Type: 
  Country: None (occurrence: None)
  Receive Date: 20100630
  Receipt Date: 20100623
  Transmission Date: 20101027
  Serious: Yes (Hospitalization)
  Sender: FDA-Public Use
  Company Number: US-B.I. PHARMACEUTICALS,INC./RIDGEFIELD-2010-BP-06739BP

PATIENT
  Age: 83 Year
  Sex: Female

DRUGS (3)
  1. MOBIC [Suspect]
     Dosage: 15 MG
  2. IBUPROFEN [Concomitant]
     Indication: OSTEOARTHRITIS
     Dosage: 800 MG
  3. IBUPROFEN [Concomitant]
     Indication: RHEUMATOID ARTHRITIS

REACTIONS (1)
  - PEPTIC ULCER HAEMORRHAGE [None]
